FAERS Safety Report 6377480-8 (Version None)
Quarter: 2009Q3

REPORT INFORMATION
  Report Type: 
  Country: None (occurrence: None)
  Receive Date: 20090925
  Receipt Date: 20090923
  Transmission Date: 20100115
  Serious: Yes (Life-Threatening, Other)
  Sender: FDA-Public Use
  Company Number: GB-WYE-G04492209

PATIENT
  Age: 47 Year
  Sex: Male
  Weight: 128 kg

DRUGS (3)
  1. IBUPROFEN [Suspect]
     Indication: MUSCLE STRAIN
     Dosage: 400 MG (FREQUENCY UNKNOWN)
     Dates: start: 20090822, end: 20090822
  2. LANSOPRAZOLE [Concomitant]
     Dosage: 15 MG (FREQUENCY UNSPECIFIED)
     Route: 048
     Dates: start: 20070101
  3. DICLOFENAC [Concomitant]
     Indication: GOUT
     Dosage: 50 MG EVERY 1 PRN
     Route: 048
     Dates: start: 20040101, end: 20090101

REACTIONS (5)
  - DYSPNOEA [None]
  - LIP SWELLING [None]
  - PHARYNGEAL OEDEMA [None]
  - RASH [None]
  - WHEEZING [None]
